FAERS Safety Report 11226518 (Version 1)
Quarter: 2015Q2

REPORT INFORMATION
  Report Type: Spontaneous
  Country: US (occurrence: US)
  Receive Date: 20150629
  Receipt Date: 20150629
  Transmission Date: 20150821
  Serious: No
  Sender: FDA-Public Use
  Company Number: US-009507513-1506USA014189

PATIENT
  Age: 47 Year
  Sex: Female

DRUGS (5)
  1. BELSOMRA [Suspect]
     Active Substance: SUVOREXANT
     Indication: INSOMNIA
     Dosage: 10 MG/1 TABLET, DAILY
     Route: 048
  2. ACYCLOVIR. [Concomitant]
     Active Substance: ACYCLOVIR
  3. VESICARE [Concomitant]
     Active Substance: SOLIFENACIN SUCCINATE
  4. LORAZEPAM. [Concomitant]
     Active Substance: LORAZEPAM
  5. LORATADINE. [Concomitant]
     Active Substance: LORATADINE
     Route: 048

REACTIONS (1)
  - Sleep paralysis [Recovered/Resolved]
